FAERS Safety Report 22035585 (Version 1)
Quarter: 2023Q1

REPORT INFORMATION
  Report Type: Spontaneous
  Country: JP (occurrence: None)
  Receive Date: 20230224
  Receipt Date: 20230224
  Transmission Date: 20230418
  Serious: Yes (Other)
  Sender: FDA-Public Use
  Company Number: 2023A042818

PATIENT
  Age: 66 Year
  Sex: Female
  Weight: 43 kg

DRUGS (4)
  1. IRESSA [Suspect]
     Active Substance: GEFITINIB
     Indication: Non-small cell lung cancer
     Route: 048
     Dates: start: 20140117, end: 20211103
  2. DACOMITINIB [Concomitant]
     Active Substance: DACOMITINIB
     Indication: Non-small cell lung cancer
     Dates: start: 20211101, end: 20211111
  3. DACOMITINIB [Concomitant]
     Active Substance: DACOMITINIB
     Indication: Non-small cell lung cancer
     Dates: start: 20211112, end: 20211115
  4. DACOMITINIB [Concomitant]
     Active Substance: DACOMITINIB
     Indication: Non-small cell lung cancer
     Dates: start: 20211116, end: 20220202

REACTIONS (3)
  - Malignant neoplasm progression [Unknown]
  - Paronychia [Unknown]
  - Therapeutic response decreased [Unknown]

NARRATIVE: CASE EVENT DATE: 20220308
